FAERS Safety Report 6390596-5 (Version None)
Quarter: 2009Q4

REPORT INFORMATION
  Report Type: 
  Country: None (occurrence: None)
  Receive Date: 20091005
  Receipt Date: 20091005
  Transmission Date: 20100525
  Serious: No
  Sender: FDA-Public Use
  Company Number: None

PATIENT
  Age: 52 Year
  Sex: Female
  Weight: 136.0791 kg

DRUGS (1)
  1. ZICAM NASAL GEL [Suspect]
     Indication: NASOPHARYNGITIS
     Dosage: ONE SPRAY TO EACH NOSTRIL EVERY 6 HOURS NASAL
     Route: 045
     Dates: start: 20090610, end: 20090617

REACTIONS (2)
  - ANOSMIA [None]
  - HYPOGEUSIA [None]
